FAERS Safety Report 8407577-X (Version None)
Quarter: 2012Q2

REPORT INFORMATION
  Report Type: 
  Country: None (occurrence: None)
  Receive Date: 20120529
  Receipt Date: 19961213
  Transmission Date: 20120825
  Serious: Yes (Death, Other)
  Sender: FDA-Public Use
  Company Number: 002568

PATIENT
  Age: 79 Year
  Sex: Female

DRUGS (8)
  1. IDEBENONE (IDEBENONE) [Concomitant]
  2. MECOBALAMIN (MECOBALAMIN) [Concomitant]
  3. SODIUM AZULENE SULFONATE [Concomitant]
  4. PLETAL [Suspect]
     Dosage: 150 MG, DAILY DOSE, ORAL
     Route: 048
     Dates: start: 19921219, end: 19950907
  5. MOXISYLYTE HYDROCHLORIDE (MOXISYLYTE HYDROCHLORIDE) [Concomitant]
  6. MAGNESIUM (MAGNESIUM) [Concomitant]
  7. TOCOPHEROL NICOTINATE (TOCOPHEROL NICOTINATE) [Concomitant]
  8. SAIREI-TO (HERBAL EXTRACTS NOS) [Concomitant]

REACTIONS (4)
  - CARDIAC FAILURE [None]
  - THALAMUS HAEMORRHAGE [None]
  - HEPATIC FAILURE [None]
  - PNEUMONIA [None]
